FAERS Safety Report 19009489 (Version 1)
Quarter: 2021Q1

REPORT INFORMATION
  Report Type: Spontaneous
  Country: JP (occurrence: JP)
  Receive Date: 20210315
  Receipt Date: 20210315
  Transmission Date: 20210420
  Serious: Yes (Other)
  Sender: FDA-Public Use
  Company Number: JP-MYLANLABS-2021M1015159

PATIENT
  Age: 36 Year
  Sex: Male

DRUGS (4)
  1. MIZORIBINE [Concomitant]
     Active Substance: MIZORIBINE
     Indication: GRANULOMATOSIS WITH POLYANGIITIS
     Dosage: 100 MILLIGRAM
     Route: 065
     Dates: start: 2011
  2. PREDNISOLONE. [Suspect]
     Active Substance: PREDNISOLONE
     Indication: GRANULOMATOSIS WITH POLYANGIITIS
     Dosage: 1000 MILLIGRAM, QD
     Route: 042
     Dates: start: 2019
  3. PREDNISOLONE. [Suspect]
     Active Substance: PREDNISOLONE
     Indication: GRANULOMATOSIS WITH POLYANGIITIS
     Dosage: 0.075 MILLIGRAM/KILOGRAM
     Route: 048
  4. PREDNISOLONE. [Suspect]
     Active Substance: PREDNISOLONE
     Dosage: 0.15 MILLIGRAM/KILOGRAM
     Route: 048
     Dates: start: 2019

REACTIONS (3)
  - Serous retinal detachment [Recovering/Resolving]
  - Detachment of retinal pigment epithelium [Recovering/Resolving]
  - Chorioretinopathy [Recovering/Resolving]
